FAERS Safety Report 9668135 (Version 2)
Quarter: 2013Q4

REPORT INFORMATION
  Report Type: Spontaneous
  Country: US (occurrence: US)
  Receive Date: 20131104
  Receipt Date: 20131221
  Transmission Date: 20140711
  Serious: No
  Sender: FDA-Public Use
  Company Number: US-009507513-1310USA014301

PATIENT
  Age: 36 Year
  Sex: Female
  Weight: 69.39 kg

DRUGS (1)
  1. OXYTROL FOR WOMEN [Suspect]
     Indication: POLLAKIURIA
     Dosage: 1 DF, ONCE
     Dates: start: 20131006, end: 20131007

REACTIONS (1)
  - Drug ineffective [Unknown]
